FAERS Safety Report 20603898 (Version 3)
Quarter: 2024Q1

REPORT INFORMATION
  Report Type: Spontaneous
  Country: US (occurrence: US)
  Receive Date: 20220316
  Receipt Date: 20240206
  Transmission Date: 20240410
  Serious: No
  Sender: FDA-Public Use
  Company Number: US-SA-SAC20220310001448

PATIENT
  Age: 18 Year
  Sex: Female
  Weight: 92.971 kg

DRUGS (1)
  1. DUPIXENT [Suspect]
     Active Substance: DUPILUMAB
     Indication: Dermatitis atopic
     Dosage: 300 MG, QOW
     Route: 058

REACTIONS (4)
  - Rash [Unknown]
  - Blister [Unknown]
  - Sleep disorder [Unknown]
  - Skin exfoliation [Unknown]
